FAERS Safety Report 20756243 (Version 1)
Quarter: 2022Q2

REPORT INFORMATION
  Report Type: Spontaneous
  Country: CA (occurrence: None)
  Receive Date: 20220426
  Receipt Date: 20220426
  Transmission Date: 20220721
  Serious: Yes (Disabling, Other)
  Sender: FDA-Public Use
  Company Number: None

PATIENT
  Age: 15 Year
  Sex: Female
  Weight: 53.55 kg

DRUGS (3)
  1. SERTRALINE [Suspect]
     Active Substance: SERTRALINE HYDROCHLORIDE
     Indication: Anxiety
     Dosage: OTHER QUANTITY : 1 CAPSULE(S);?FREQUENCY : DAILY;?
     Route: 048
     Dates: start: 20220311, end: 20220426
  2. LISINOPRIL [Concomitant]
     Active Substance: LISINOPRIL
  3. ADVIP [Concomitant]

REACTIONS (5)
  - Abdominal pain upper [None]
  - Dizziness [None]
  - Headache [None]
  - Cardiac flutter [None]
  - Fatigue [None]

NARRATIVE: CASE EVENT DATE: 20220311
